FAERS Safety Report 11789909 (Version 1)
Quarter: 2015Q4

REPORT INFORMATION
  Report Type: Spontaneous
  Country: US (occurrence: None)
  Receive Date: 20151130
  Receipt Date: 20151130
  Transmission Date: 20160305
  Serious: No
  Sender: FDA-Public Use
  Company Number: None

PATIENT
  Age: 57 Year
  Sex: Female

DRUGS (10)
  1. IBRANCE [Suspect]
     Active Substance: PALBOCICLIB
     Indication: BREAST CANCER
     Route: 048
     Dates: start: 20151008, end: 20151114
  2. ERYTHROMYCIN. [Concomitant]
     Active Substance: ERYTHROMYCIN
  3. FUROSEMIDE. [Concomitant]
     Active Substance: FUROSEMIDE
  4. POT CL [Concomitant]
  5. PROCTOZONE [Concomitant]
     Active Substance: HYDROCORTISONE
  6. ANUCORT-HC [Concomitant]
     Active Substance: HYDROCORTISONE ACETATE
  7. LETROZOLE. [Concomitant]
     Active Substance: LETROZOLE
  8. GLIMEPERIDE [Concomitant]
     Active Substance: GLIMEPIRIDE
  9. OXYCODONE [Concomitant]
     Active Substance: OXYCODONE
  10. DEXAMETHASONE. [Concomitant]
     Active Substance: DEXAMETHASONE

REACTIONS (1)
  - Drug ineffective [None]

NARRATIVE: CASE EVENT DATE: 201511
